FAERS Safety Report 8569429-4 (Version None)
Quarter: 2012Q3

REPORT INFORMATION
  Report Type: 
  Country: None (occurrence: None)
  Receive Date: 20120803
  Receipt Date: 20120605
  Transmission Date: 20120928
  Serious: No
  Sender: FDA-Public Use
  Company Number: US-ABBOTT-12P-163-0942436-00

PATIENT
  Sex: Female

DRUGS (4)
  1. THYROID TAB [Concomitant]
     Indication: PRODUCT USED FOR UNKNOWN INDICATION
  2. HYDROCODONE BITARTRATE [Concomitant]
     Indication: PRODUCT USED FOR UNKNOWN INDICATION
  3. NIASPAN [Suspect]
     Indication: BLOOD CHOLESTEROL INCREASED
  4. ASPIRIN [Concomitant]
     Indication: PRODUCT USED FOR UNKNOWN INDICATION

REACTIONS (8)
  - ABDOMINAL DISCOMFORT [None]
  - MIDDLE INSOMNIA [None]
  - HYPERHIDROSIS [None]
  - FEELING HOT [None]
  - VERTIGO [None]
  - NAUSEA [None]
  - ERYTHEMA [None]
  - HOT FLUSH [None]
